FAERS Safety Report 9527984 (Version 1)
Quarter: 2013Q3

REPORT INFORMATION
  Report Type: Spontaneous
  Country: DE (occurrence: None)
  Receive Date: 20130913
  Receipt Date: 20130913
  Transmission Date: 20140515
  Serious: Yes (Hospitalization, Disabling, Other)
  Sender: FDA-Public Use
  Company Number: CO-OR-DE-2013-050

PATIENT
  Age: 17 Year
  Sex: Female

DRUGS (3)
  1. PREDNISOLONE [Suspect]
     Indication: INTRACRANIAL HAEMANGIOMA
  2. PROPANOLOL [Concomitant]
  3. BEVACIZUMAB [Concomitant]

REACTIONS (4)
  - Vasospasm [None]
  - Hemiplegia [None]
  - Cerebral atrophy [None]
  - Blindness unilateral [None]
